FAERS Safety Report 25722093 (Version 2)
Quarter: 2025Q4

REPORT INFORMATION
  Report Type: Spontaneous
  Country: US (occurrence: US)
  Receive Date: 20250825
  Receipt Date: 20251007
  Transmission Date: 20260118
  Serious: Yes (Hospitalization)
  Sender: PFIZER
  Company Number: US-PFIZER INC-202500164375

PATIENT
  Age: 52 Year
  Sex: Male

DRUGS (5)
  1. VECURONIUM BROMIDE [Interacting]
     Active Substance: VECURONIUM BROMIDE
     Dosage: 1.33 UG/KG/MIN
  2. METHYLPREDNISOLONE SODIUM SUCCINATE [Suspect]
     Active Substance: METHYLPREDNISOLONE SODIUM SUCCINATE
     Dosage: 125 MG, DAILY
     Route: 042
  3. TOBRAMYCIN [Interacting]
     Active Substance: TOBRAMYCIN
     Dosage: 175 MG, DAILY
  4. CEFTAZIDIME [Concomitant]
     Active Substance: CEFTAZIDIME
     Dosage: 3 G, DAILY
  5. ERYTHROMYCIN [Concomitant]
     Active Substance: ERYTHROMYCIN
     Dosage: 2 G, DAILY

REACTIONS (3)
  - Muscular weakness [Recovered/Resolved]
  - Therapeutic product effect prolonged [Recovered/Resolved]
  - Potentiating drug interaction [Unknown]
